FAERS Safety Report 8125775-X (Version None)
Quarter: 2012Q1

REPORT INFORMATION
  Report Type: 
  Country: None (occurrence: None)
  Receive Date: 20120209
  Receipt Date: 20120206
  Transmission Date: 20120608
  Serious: No
  Sender: FDA-Public Use
  Company Number: US-BAYER-2012-011178

PATIENT
  Age: 68 Year
  Sex: Male
  Weight: 129 kg

DRUGS (21)
  1. POTASSIUM [Concomitant]
  2. GLYBURIDE [Concomitant]
  3. CRESTOR [Concomitant]
  4. VITAMIN B COMPLEX CAP [Concomitant]
  5. CINNAMON [Concomitant]
  6. ZETIA [Concomitant]
  7. FISH OIL [Concomitant]
  8. ANTIHYPERTENSIVES [Concomitant]
  9. LISINOPRIL [Concomitant]
  10. FUROSEMIDE [Concomitant]
  11. LANTUS [Concomitant]
  12. NIASPAN [Concomitant]
  13. GEMFIBROZIL [Concomitant]
  14. PRILOSEC [Concomitant]
  15. ALEVE (CAPLET) [Suspect]
     Indication: BACK PAIN
     Dosage: 1 TABLET TWICE DAILY - 50 COUNT
     Route: 048
     Dates: start: 20120118, end: 20120129
  16. METFORMIN HCL [Concomitant]
  17. ASCORBIC ACID [Concomitant]
  18. MULTIVITAMIN PREPARATION + MINERAL SUPPLEMENT [Concomitant]
  19. ANTI-DIABETICS [Concomitant]
  20. FOLIC ACID [Concomitant]
  21. METOCLOPRAMIDE [Concomitant]

REACTIONS (1)
  - URTICARIA [None]
